FAERS Safety Report 18168693 (Version 2)
Quarter: 2020Q4

REPORT INFORMATION
  Report Type: Spontaneous
  Country: CA (occurrence: CA)
  Receive Date: 20200818
  Receipt Date: 20201027
  Transmission Date: 20210113
  Serious: Yes (Life-Threatening, Other)
  Sender: FDA-Public Use
  Company Number: CA-SEATTLE GENETICS-2020SGN03562

PATIENT
  Age: 12 Year
  Sex: Male
  Weight: 47 kg

DRUGS (18)
  1. ADCETRIS [Suspect]
     Active Substance: BRENTUXIMAB VEDOTIN
     Indication: ANAPLASTIC LARGE CELL LYMPHOMA T- AND NULL-CELL TYPES
     Dosage: 64 MG
     Route: 042
  2. ETOPOSIDE. [Suspect]
     Active Substance: ETOPOSIDE
     Indication: ANAPLASTIC LARGE CELL LYMPHOMA T- AND NULL-CELL TYPES
     Dosage: 140 MG
     Route: 042
  3. ACETAMINOPHEN. [Concomitant]
     Active Substance: ACETAMINOPHEN
  4. DIMENHYDRINATE. [Concomitant]
     Active Substance: DIMENHYDRINATE
     Route: 042
  5. LORATADINE. [Concomitant]
     Active Substance: LORATADINE
  6. LIDOCAINE. [Concomitant]
     Active Substance: LIDOCAINE
     Route: 061
  7. NYSTATIN. [Concomitant]
     Active Substance: NYSTATIN
  8. POLYETHYLENE GLYCOL [Concomitant]
     Active Substance: POLYETHYLENE GLYCOLS
  9. GABAPENTIN. [Concomitant]
     Active Substance: GABAPENTIN
  10. HEPARIN CALCIUM [Concomitant]
     Active Substance: HEPARIN CALCIUM
  11. CYTARABINE. [Suspect]
     Active Substance: CYTARABINE
     Indication: ANAPLASTIC LARGE CELL LYMPHOMA T- AND NULL-CELL TYPES
     Dosage: 210 MG, BID
     Route: 042
  12. METHOTREXATE. [Suspect]
     Active Substance: METHOTREXATE
     Indication: ANAPLASTIC LARGE CELL LYMPHOMA T- AND NULL-CELL TYPES
     Dosage: 4200 MG, SINGLE
     Route: 042
  13. MORPHINE [Concomitant]
     Active Substance: MORPHINE
  14. CALCIUM CARBONATE. [Concomitant]
     Active Substance: CALCIUM CARBONATE
  15. ENOXAPARIN [Concomitant]
     Active Substance: ENOXAPARIN
  16. FAMOTIDINE. [Concomitant]
     Active Substance: FAMOTIDINE
     Route: 042
  17. ONDANSETRON [Concomitant]
     Active Substance: ONDANSETRON
  18. PENTAMIDINE ISETHIONATE. [Concomitant]
     Active Substance: PENTAMIDINE ISETHIONATE
     Route: 030

REACTIONS (3)
  - Pancytopenia [Unknown]
  - Transfusion [Unknown]
  - Off label use [Unknown]
